FAERS Safety Report 15224015 (Version 22)
Quarter: 2020Q1

REPORT INFORMATION
  Report Type: Report from Study
  Country: US (occurrence: US)
  Receive Date: 20180731
  Receipt Date: 20200109
  Transmission Date: 20200409
  Serious: Yes (Hospitalization, Other)
  Sender: FDA-Public Use
  Company Number: US-MALLINCKRODT-T201606131

PATIENT
  Age: 54 Year
  Sex: Female

DRUGS (16)
  1. REPOSITORY CORTICOTROPIN INJECTION [Suspect]
     Active Substance: CORTICOTROPIN
     Dosage: 80 UNITS/1 ML, 2 TIMES PER WEEK, (TUESDAY/FRIDAY)
     Route: 058
     Dates: end: 20171120
  2. REPOSITORY CORTICOTROPIN INJECTION [Suspect]
     Active Substance: CORTICOTROPIN
     Dosage: 80 UNITS / 1 ML 2 TIMES PER WEEK  SUNDAY/WEDNESDAY
     Route: 058
     Dates: start: 20190402, end: 2019
  3. REPOSITORY CORTICOTROPIN INJECTION [Suspect]
     Active Substance: CORTICOTROPIN
     Dosage: 80 UNITS/1 ML, 2 TIMES PER WEEK (TUESDAY/SATURDAY)
     Route: 058
     Dates: start: 2019, end: 2019
  4. REPOSITORY CORTICOTROPIN INJECTION [Suspect]
     Active Substance: CORTICOTROPIN
     Dosage: 80 UNITS/1 ML, 2 TIMES PER WEEK, (TUESDAY/FRIDAY)
     Route: 058
  5. BENLYSTA [Concomitant]
     Active Substance: BELIMUMAB
     Indication: PRODUCT USED FOR UNKNOWN INDICATION
     Dosage: UNK
     Route: 042
  6. REPOSITORY CORTICOTROPIN INJECTION [Suspect]
     Active Substance: CORTICOTROPIN
     Dosage: 80 UNITS/1 ML 2 TIMES PER WEEK, TUESDAY/FRIDAY
     Route: 058
  7. REPOSITORY CORTICOTROPIN INJECTION [Suspect]
     Active Substance: CORTICOTROPIN
     Dosage: 80 UNITS, 2 TIMES PER WEEK, (TUESDAY/FRIDAY)
     Route: 030
  8. REPOSITORY CORTICOTROPIN INJECTION [Suspect]
     Active Substance: CORTICOTROPIN
     Dosage: 80 UNITS / 1 ML 2 TIMES PER WEEK  SUNDAY/WEDNESDAY
     Route: 058
     Dates: start: 20190213, end: 20190317
  9. INSULIN [Suspect]
     Active Substance: INSULIN NOS
     Dosage: INCREASED TO 50 UNITS
     Route: 065
  10. REPOSITORY CORTICOTROPIN INJECTION [Suspect]
     Active Substance: CORTICOTROPIN
     Indication: SYSTEMIC LUPUS ERYTHEMATOSUS
     Dosage: 80 UNITS, 2 TIMES PER WEEK, (TUESDAY/FRIDAY)
     Route: 030
     Dates: start: 20160805
  11. REPOSITORY CORTICOTROPIN INJECTION [Suspect]
     Active Substance: CORTICOTROPIN
     Dosage: 80 UNITS, 2 TIMES PER WEEK, (TUESDAY/FRIDAY)
     Route: 030
     Dates: start: 20170516
  12. REPOSITORY CORTICOTROPIN INJECTION [Suspect]
     Active Substance: CORTICOTROPIN
     Dosage: 80 UNITS, 2 TIMES PER WEEK, (TUESDAY/FRIDAY)
     Route: 058
  13. REPOSITORY CORTICOTROPIN INJECTION [Suspect]
     Active Substance: CORTICOTROPIN
     Dosage: 80 UNITS/1 ML, 2 TIMES PER WEEK (TUESDAY/SATURDAY)
     Route: 058
     Dates: start: 2019
  14. GABAPENTIN. [Concomitant]
     Active Substance: GABAPENTIN
     Indication: CARDIAC DISORDER
     Dosage: UNK
     Route: 065
  15. REPOSITORY CORTICOTROPIN INJECTION [Suspect]
     Active Substance: CORTICOTROPIN
     Dosage: 80 UNITS / 1 ML 2 TIMES PER WEEK  TUESDAY/FRIDAY
     Route: 058
     Dates: end: 20181211
  16. INSULIN [Suspect]
     Active Substance: INSULIN NOS
     Indication: DIABETES MELLITUS
     Dosage: UNK
     Route: 065

REACTIONS (82)
  - Glaucoma [Recovered/Resolved]
  - Chronic kidney disease [Not Recovered/Not Resolved]
  - Bronchitis [Unknown]
  - Nausea [Unknown]
  - Gait disturbance [Unknown]
  - Rash pruritic [Unknown]
  - White blood cell count increased [Unknown]
  - Liver disorder [Not Recovered/Not Resolved]
  - Visual impairment [Unknown]
  - Pain in extremity [Not Recovered/Not Resolved]
  - Injury [Not Recovered/Not Resolved]
  - Tremor [Unknown]
  - Somnolence [Unknown]
  - Hyperhidrosis [Not Recovered/Not Resolved]
  - Vomiting [Unknown]
  - Oedema peripheral [Unknown]
  - Bedridden [Not Recovered/Not Resolved]
  - Dental operation [Unknown]
  - Hypertension [Not Recovered/Not Resolved]
  - Pain [Not Recovered/Not Resolved]
  - Fall [Unknown]
  - Blood pressure fluctuation [Unknown]
  - Peripheral swelling [Not Recovered/Not Resolved]
  - Diarrhoea [Unknown]
  - Decreased appetite [Not Recovered/Not Resolved]
  - Blood potassium increased [Unknown]
  - Anger [Unknown]
  - Diabetes mellitus [Not Recovered/Not Resolved]
  - Systemic lupus erythematosus [Unknown]
  - Paraesthesia [Unknown]
  - Vertigo [Unknown]
  - Dry skin [Unknown]
  - Arthritis [Not Recovered/Not Resolved]
  - Fatigue [Not Recovered/Not Resolved]
  - Chills [Unknown]
  - Balance disorder [Unknown]
  - Flushing [Unknown]
  - Headache [Unknown]
  - Mood altered [Unknown]
  - Blood glucose fluctuation [Unknown]
  - Cough [Not Recovered/Not Resolved]
  - Blood cholesterol abnormal [Unknown]
  - Thyroid disorder [Recovering/Resolving]
  - Erythema [Not Recovered/Not Resolved]
  - Aphonia [Unknown]
  - Muscle spasms [Unknown]
  - Swelling [Not Recovered/Not Resolved]
  - Feeling abnormal [Not Recovered/Not Resolved]
  - Insomnia [Unknown]
  - Weight increased [Unknown]
  - Renal surgery [Unknown]
  - Tooth disorder [Unknown]
  - Increased appetite [Unknown]
  - Back pain [Not Recovered/Not Resolved]
  - Arthralgia [Not Recovered/Not Resolved]
  - Photosensitivity reaction [Not Recovered/Not Resolved]
  - Urinary retention [Not Recovered/Not Resolved]
  - Dry mouth [Unknown]
  - Nasopharyngitis [Not Recovered/Not Resolved]
  - Therapy cessation [Unknown]
  - Weight decreased [Unknown]
  - Contusion [Not Recovered/Not Resolved]
  - Dyspnoea [Not Recovered/Not Resolved]
  - Dizziness [Not Recovered/Not Resolved]
  - Chest pain [Not Recovered/Not Resolved]
  - Malaise [Unknown]
  - Hypoaesthesia [Unknown]
  - Rash [Recovered/Resolved]
  - Stress [Unknown]
  - Thirst [Unknown]
  - Product dose omission [Not Recovered/Not Resolved]
  - Blood glucose decreased [Unknown]
  - Injection site bruising [Unknown]
  - Glycosylated haemoglobin increased [Not Recovered/Not Resolved]
  - Pollakiuria [Unknown]
  - Skin exfoliation [Not Recovered/Not Resolved]
  - Asthenia [Recovering/Resolving]
  - Blood test abnormal [Not Recovered/Not Resolved]
  - Memory impairment [Not Recovered/Not Resolved]
  - Diplopia [Unknown]
  - Anxiety [Unknown]
  - Depression [Not Recovered/Not Resolved]

NARRATIVE: CASE EVENT DATE: 201611
